FAERS Safety Report 20299626 (Version 1)
Quarter: 2022Q1

REPORT INFORMATION
  Report Type: Spontaneous
  Country: ES (occurrence: ES)
  Receive Date: 20220105
  Receipt Date: 20220105
  Transmission Date: 20220423
  Serious: Yes (Life-Threatening, Hospitalization, Other)
  Sender: FDA-Public Use
  Company Number: None

PATIENT
  Age: 7 Month
  Sex: Female
  Weight: 7.8 kg

DRUGS (3)
  1. RANITIDINE [Suspect]
     Active Substance: RANITIDINE
     Indication: Diffuse cutaneous mastocytosis
     Dosage: 3 MILLILITER, BID
     Route: 048
     Dates: start: 20191114
  2. DEXCHLORPHENIRAMINE [Suspect]
     Active Substance: DEXCHLORPHENIRAMINE
     Indication: Diffuse cutaneous mastocytosis
     Dosage: SP
     Route: 048
     Dates: start: 20191203
  3. KETOTIFEN [Suspect]
     Active Substance: KETOTIFEN
     Indication: Diffuse cutaneous mastocytosis
     Dosage: SP
     Route: 048
     Dates: start: 20191114

REACTIONS (2)
  - Microangiopathic haemolytic anaemia [Recovering/Resolving]
  - Off label use [Unknown]

NARRATIVE: CASE EVENT DATE: 20200530
